FAERS Safety Report 5583379-7 (Version None)
Quarter: 2007Q4

REPORT INFORMATION
  Report Type: 
  Country: None (occurrence: None)
  Receive Date: 20071231
  Receipt Date: 20071213
  Transmission Date: 20080405
  Serious: Yes (Other)
  Sender: FDA-Public Use
  Company Number: 8028662

PATIENT
  Weight: 1.4 kg

DRUGS (4)
  1. KEPPRA [Suspect]
     Dosage: 500 MG  2/D TRP
     Dates: start: 20070215
  2. PHENERGAN HCL [Concomitant]
  3. ZOFRAN [Concomitant]
  4. GABAPENTIN [Concomitant]

REACTIONS (3)
  - CAESAREAN SECTION [None]
  - DRUG EXPOSURE DURING PREGNANCY [None]
  - PREMATURE BABY [None]
